FAERS Safety Report 9688635 (Version 1)
Quarter: 2013Q4

REPORT INFORMATION
  Report Type: Spontaneous
  Country: IT (occurrence: IT)
  Receive Date: 20131114
  Receipt Date: 20131114
  Transmission Date: 20140711
  Serious: Yes (Hospitalization)
  Sender: FDA-Public Use
  Company Number: IT-ASTRAZENECA-2013SE81494

PATIENT
  Age: 27284 Day
  Sex: Male

DRUGS (6)
  1. CRESTOR [Suspect]
     Indication: DYSLIPIDAEMIA
     Route: 048
     Dates: start: 20030101, end: 20130924
  2. ALFUZOSIN HYDROCHLORIDE [Concomitant]
     Indication: BENIGN PROSTATIC HYPERPLASIA
  3. ASA [Concomitant]
  4. ENALAPRIL [Concomitant]
  5. GARDENALE [Concomitant]
     Indication: EPILEPSY
  6. MONOCINQUE [Concomitant]

REACTIONS (1)
  - Hypersensitivity vasculitis [Recovered/Resolved]
